FAERS Safety Report 17077871 (Version 2)
Quarter: 2019Q4

REPORT INFORMATION
  Report Type: Report from Study
  Country: GB (occurrence: GB)
  Receive Date: 20191126
  Receipt Date: 20191127
  Transmission Date: 20200122
  Serious: Yes (Hospitalization)
  Sender: FDA-Public Use
  Company Number: GB-JNJFOC-20191129955

PATIENT
  Age: 61 Year
  Sex: Female
  Weight: 110.6 kg

DRUGS (4)
  1. DIHYDROCODEINE BITARTRATE. [Concomitant]
     Active Substance: DIHYDROCODEINE BITARTRATE
     Indication: PRODUCT USED FOR UNKNOWN INDICATION
     Dates: start: 20080107
  2. CARVEDILOL. [Concomitant]
     Active Substance: CARVEDILOL
     Indication: PRODUCT USED FOR UNKNOWN INDICATION
     Dates: start: 20190606
  3. STELARA [Suspect]
     Active Substance: USTEKINUMAB
     Indication: PSORIASIS
     Route: 058
     Dates: start: 20140310, end: 20190515
  4. ACITRETIN. [Concomitant]
     Active Substance: ACITRETIN
     Indication: PRODUCT USED FOR UNKNOWN INDICATION
     Dates: start: 20170310

REACTIONS (3)
  - Cardiac failure congestive [Unknown]
  - Pyelonephritis [Unknown]
  - Transfusion [Not Recovered/Not Resolved]

NARRATIVE: CASE EVENT DATE: 20190426
